FAERS Safety Report 22196354 (Version 1)
Quarter: 2023Q2

REPORT INFORMATION
  Report Type: Spontaneous
  Country: CZ (occurrence: CZ)
  Receive Date: 20230411
  Receipt Date: 20230411
  Transmission Date: 20230721
  Serious: Yes (Life-Threatening, Hospitalization, Other)
  Sender: FDA-Public Use
  Company Number: None

PATIENT
  Age: 93 Year
  Sex: Female
  Weight: 63.5 kg

DRUGS (6)
  1. XARELTO [Suspect]
     Active Substance: RIVAROXABAN
     Indication: Anticoagulant therapy
     Dosage: 0-1-0
     Route: 048
     Dates: start: 20210713, end: 20211213
  2. CHOLECALCIFEROL [Concomitant]
     Active Substance: CHOLECALCIFEROL
     Dosage: 15 GTT ONCE A WEEK
  3. BISOPROLOL FUMARATE [Concomitant]
     Active Substance: BISOPROLOL FUMARATE
     Indication: Atrial fibrillation
     Dosage: 0.63 MG, QD
     Route: 048
     Dates: start: 20210605
  4. PANTOPRAZOLE SODIUM [Concomitant]
     Active Substance: PANTOPRAZOLE SODIUM
     Indication: Haemorrhage prophylaxis
     Dosage: 1-0-0
     Route: 048
     Dates: start: 20210622
  5. BISOPROLOL [Concomitant]
     Active Substance: BISOPROLOL
     Dosage: 1/4-0-0
  6. LACTULOSE [Concomitant]
     Active Substance: LACTULOSE
     Dosage: 2-3 TIMES A DAY DURING CONSTIPATION

REACTIONS (4)
  - Hepatic lesion [Recovering/Resolving]
  - Jaundice [Unknown]
  - Vomiting [Recovered/Resolved]
  - Decreased appetite [Recovered/Resolved]

NARRATIVE: CASE EVENT DATE: 20211213
